FAERS Safety Report 12866786 (Version 2)
Quarter: 2016Q4

REPORT INFORMATION
  Report Type: Spontaneous
  Country: IT (occurrence: IT)
  Receive Date: 20161020
  Receipt Date: 20161128
  Transmission Date: 20170207
  Serious: Yes (Death, Other)
  Sender: FDA-Public Use
  Company Number: IT-TEVA-702774ACC

PATIENT

DRUGS (4)
  1. HALOPERIDOL. [Suspect]
     Active Substance: HALOPERIDOL
  2. RISPERIDONE. [Suspect]
     Active Substance: RISPERIDONE
  3. QUETIAPINE. [Suspect]
     Active Substance: QUETIAPINE
  4. OLANZAPINE. [Suspect]
     Active Substance: OLANZAPINE

REACTIONS (5)
  - Dementia [Unknown]
  - General physical health deterioration [Unknown]
  - Adverse event [Unknown]
  - Death [Fatal]
  - Parkinsonism [Unknown]
